FAERS Safety Report 9748509 (Version 1)
Quarter: 2013Q4

REPORT INFORMATION
  Report Type: Report from Study
  Country: CA (occurrence: CA)
  Receive Date: 20131212
  Receipt Date: 20131212
  Transmission Date: 20140711
  Serious: Yes (Hospitalization)
  Sender: FDA-Public Use
  Company Number: CA-JNJFOC-20131204503

PATIENT
  Age: 59 Year
  Sex: Female
  Weight: 81.3 kg

DRUGS (15)
  1. REMICADE [Suspect]
     Indication: CROHN^S DISEASE
     Dosage: 2ND LOADING DOSE
     Route: 042
  2. REMICADE [Suspect]
     Indication: CROHN^S DISEASE
     Dosage: LOADING DOSE NUMBER 3
     Route: 042
     Dates: start: 20131204
  3. REMICADE [Suspect]
     Indication: CROHN^S DISEASE
     Dosage: 1ST LOADING DOSE
     Route: 042
     Dates: start: 20131024
  4. LAMOTRIGINE [Concomitant]
     Route: 048
  5. OLANZAPINE [Concomitant]
     Route: 065
  6. PENTASA [Concomitant]
     Dosage: 2 OF SOMETHING
     Route: 065
  7. PREDNISONE [Concomitant]
     Route: 065
  8. PANTOLOC [Concomitant]
     Route: 065
  9. OLESTYR [Concomitant]
     Route: 065
  10. WARFARIN [Concomitant]
     Route: 065
  11. FLORINEF [Concomitant]
     Dosage: 1/4 TABLET
     Route: 065
  12. VENLAFAXINE XR [Concomitant]
     Dosage: 3 OF SOMETHING ONLY IN AM
     Route: 065
  13. FOLIC ACID [Concomitant]
     Route: 065
  14. BUPROPION [Concomitant]
     Route: 065
  15. IRON [Concomitant]
     Dosage: ONE OF SOMETHING
     Route: 065

REACTIONS (3)
  - Hip fracture [Recovered/Resolved]
  - Fall [Recovered/Resolved]
  - Thrombosis [Unknown]
